FAERS Safety Report 6012867-4 (Version None)
Quarter: 2008Q4

REPORT INFORMATION
  Report Type: 
  Country: None (occurrence: None)
  Receive Date: 20081217
  Receipt Date: 20081209
  Transmission Date: 20090506
  Serious: Yes (Other)
  Sender: FDA-Public Use
  Company Number: 20714

PATIENT
  Age: 45 Year
  Sex: Female
  Weight: 82.1011 kg

DRUGS (5)
  1. PACLITAXEL [Suspect]
     Indication: OVARIAN CANCER
     Dosage: 295 MG Q21DAYS IV
     Route: 042
     Dates: start: 20081201, end: 20081201
  2. ALOXI. MFR: NOT SPECIFIED [Concomitant]
  3. DECADRON /00016001/. MFR: NOT SPECIFIED [Concomitant]
  4. BENADRYL [Concomitant]
  5. ZANTAC. MFR: NOT SPECIFIED [Concomitant]

REACTIONS (4)
  - CHEST DISCOMFORT [None]
  - NERVOUSNESS [None]
  - PALPITATIONS [None]
  - TACHYCARDIA [None]
